FAERS Safety Report 19148431 (Version 1)
Quarter: 2021Q2

REPORT INFORMATION
  Report Type: Spontaneous
  Country: FR (occurrence: FR)
  Receive Date: 20210416
  Receipt Date: 20210416
  Transmission Date: 20210717
  Serious: Yes (Hospitalization)
  Sender: FDA-Public Use
  Company Number: FR-009507513-2104FRA003040

PATIENT
  Age: 55 Year
  Sex: Female
  Weight: 80 kg

DRUGS (4)
  1. ALIMTA [Suspect]
     Active Substance: PEMETREXED DISODIUM
  2. CARBOPLATIN ACCORD [Concomitant]
     Active Substance: CARBOPLATIN
  3. KABI PACLITAXEL [Concomitant]
     Active Substance: PACLITAXEL
  4. KEYTRUDA [Suspect]
     Active Substance: PEMBROLIZUMAB
     Indication: LUNG ADENOCARCINOMA STAGE IV
     Dosage: CYCLE OF 21 DAYS
     Route: 041
     Dates: start: 20210115

REACTIONS (1)
  - Thrombocytopenia [Not Recovered/Not Resolved]

NARRATIVE: CASE EVENT DATE: 20210205
